FAERS Safety Report 7351069-6 (Version None)
Quarter: 2011Q1

REPORT INFORMATION
  Report Type: 
  Country: None (occurrence: None)
  Receive Date: 20110314
  Receipt Date: 20110304
  Transmission Date: 20110831
  Serious: Yes (Hospitalization, Other)
  Sender: FDA-Public Use
  Company Number: US-BAYER-2011-004055

PATIENT
  Sex: Female
  Weight: 90.703 kg

DRUGS (1)
  1. MIRENA [Suspect]
     Indication: CONTRACEPTION
     Dosage: 20 MCG/24HR, CONT
     Route: 015
     Dates: start: 20100121, end: 20110118

REACTIONS (2)
  - PELVIC INFLAMMATORY DISEASE [None]
  - DEVICE DISLOCATION [None]
